FAERS Safety Report 5595024-5 (Version None)
Quarter: 2008Q1

REPORT INFORMATION
  Report Type: 
  Country: None (occurrence: None)
  Receive Date: 20080117
  Receipt Date: 20080114
  Transmission Date: 20080703
  Serious: Yes (Other)
  Sender: FDA-Public Use
  Company Number: GB-TEVA-166280ISR

PATIENT
  Age: 42 Year
  Sex: Female

DRUGS (3)
  1. PROPRANOLOL [Suspect]
     Route: 048
     Dates: start: 20070801, end: 20071001
  2. BUSPIRONE HYDROCHLORIDE [Suspect]
     Route: 048
     Dates: start: 20070801, end: 20071101
  3. VENLAFAXINE HYDROCHLORIDE [Suspect]
     Route: 048
     Dates: start: 20071113

REACTIONS (9)
  - BEDRIDDEN [None]
  - BURNING SENSATION [None]
  - DIZZINESS [None]
  - HEADACHE [None]
  - HYPOTENSION [None]
  - LETHARGY [None]
  - MYDRIASIS [None]
  - NAUSEA [None]
  - VISION BLURRED [None]
